FAERS Safety Report 4661945-0 (Version None)
Quarter: 2005Q2

REPORT INFORMATION
  Report Type: 
  Country: None (occurrence: None)
  Receive Date: 20050513
  Receipt Date: 20050506
  Transmission Date: 20051028
  Serious: Yes (Death)
  Sender: FDA-Public Use
  Company Number: GB-MERCK-0505USA01373

PATIENT
  Sex: Female

DRUGS (7)
  1. COSMEGEN [Suspect]
     Indication: EWING'S SARCOMA
     Route: 041
  2. CISPLATIN [Concomitant]
     Indication: EWING'S SARCOMA
     Route: 042
  3. VINCRISTINE SULFATE [Concomitant]
     Indication: EWING'S SARCOMA
     Route: 042
  4. CARBOPLATIN [Concomitant]
     Indication: EWING'S SARCOMA
     Route: 042
  5. ETOPOSIDE [Concomitant]
     Indication: EWING'S SARCOMA
     Route: 042
  6. DOXORUBICIN [Concomitant]
     Indication: EWING'S SARCOMA
     Route: 042
  7. IFOSFAMIDE [Concomitant]
     Indication: EWING'S SARCOMA
     Route: 042

REACTIONS (1)
  - EWING'S SARCOMA [None]
